FAERS Safety Report 7075458-2 (Version None)
Quarter: 2010Q4

REPORT INFORMATION
  Report Type: 
  Country: None (occurrence: None)
  Receive Date: 20101030
  Receipt Date: 20100907
  Transmission Date: 20110411
  Serious: No
  Sender: FDA-Public Use
  Company Number: US-WYE-H17383910

PATIENT
  Age: 20 Year

DRUGS (2)
  1. PRISTIQ [Suspect]
     Dosage: UNKNOWN
     Dates: start: 20100801
  2. SIMVASTATIN [Concomitant]

REACTIONS (1)
  - BLOOD CHOLESTEROL INCREASED [None]
